FAERS Safety Report 7652586-1 (Version None)
Quarter: 2011Q3

REPORT INFORMATION
  Report Type: 
  Country: None (occurrence: None)
  Receive Date: 20110803
  Receipt Date: 20110728
  Transmission Date: 20111222
  Serious: Yes (Other)
  Sender: FDA-Public Use
  Company Number: IL-SANOFI-AVENTIS-2011SA048869

PATIENT
  Age: 49 Year
  Sex: Male

DRUGS (4)
  1. AMLODIPINE [Concomitant]
     Indication: HYPERTENSION
  2. ASPIRIN [Concomitant]
  3. VALSARTAN [Concomitant]
  4. MULTAQ [Suspect]
     Indication: ATRIAL FIBRILLATION
     Route: 048
     Dates: start: 20110101

REACTIONS (6)
  - SENSORY DISTURBANCE [None]
  - SYNCOPE [None]
  - CONDITION AGGRAVATED [None]
  - HEMIPARESIS [None]
  - ATRIAL FIBRILLATION [None]
  - ASTHENIA [None]
